FAERS Safety Report 8660756 (Version 2)
Quarter: 2012Q4

REPORT INFORMATION
  Report Type: 
  Country: US (occurrence: US)
  Receive Date: 20120711
  Receipt Date: 20121203
  Transmission Date: 20130627
  Serious: No
  Sender: FDA-Public Use
  Company Number: US-009507513-1207USA00137

PATIENT
  Age: 38 Year
  Sex: Female
  Weight: 113.4 kg

DRUGS (6)
  1. DECADRON [Suspect]
     Indication: INFLAMMATION
     Dosage: UNK UNK, ONCE
     Dates: start: 20120620, end: 20120620
  2. DECADRON TABLETS [Suspect]
     Indication: INFLAMMATION
     Dosage: UNK
     Route: 048
     Dates: start: 20120620
  3. LYRICA [Suspect]
     Indication: FIBROMYALGIA
     Dosage: 300 mg, bid
     Route: 048
     Dates: start: 2008
  4. TYLENOL WITH CODEINE [Concomitant]
     Dosage: 300/30
  5. TRAZODONE HYDROCHLORIDE [Concomitant]
     Dosage: 200 mg, qd
  6. VITAMINS (UNSPECIFIED) [Concomitant]
     Dosage: UNK UNK, qd

REACTIONS (2)
  - Feeling abnormal [Not Recovered/Not Resolved]
  - Adverse event [Not Recovered/Not Resolved]
